FAERS Safety Report 23961230 (Version 6)
Quarter: 2024Q4

REPORT INFORMATION
  Report Type: Spontaneous
  Country: CA (occurrence: CA)
  Receive Date: 20240611
  Receipt Date: 20241218
  Transmission Date: 20250114
  Serious: Yes (Hospitalization, Other)
  Sender: PFIZER
  Company Number: CA-PFIZER INC-202400189822

PATIENT
  Age: 65 Year
  Sex: Male
  Weight: 108.84 kg

DRUGS (4)
  1. METHOTREXATE SODIUM [Suspect]
     Active Substance: METHOTREXATE SODIUM
     Indication: Colitis ulcerative
     Dosage: 1 DF
     Dates: start: 2014
  2. OZEMPIC [Concomitant]
     Active Substance: SEMAGLUTIDE
     Dosage: UNK
  3. REMICADE [Concomitant]
     Active Substance: INFLIXIMAB
     Dosage: 5 MG/KG, CYCLIC (EVERY 6 WEEKS)
     Dates: start: 2012, end: 202406
  4. INFLECTRA [Concomitant]
     Active Substance: INFLIXIMAB-DYYB
     Indication: Colitis ulcerative
     Dosage: 500 MG, EERY 6 WEEKS
     Route: 042
     Dates: start: 20241111

REACTIONS (9)
  - Colon cancer [Not Recovered/Not Resolved]
  - Bradycardia [Unknown]
  - Adrenal gland cancer [Unknown]
  - Anxiety [Unknown]
  - Arthritis [Not Recovered/Not Resolved]
  - Frustration tolerance decreased [Unknown]
  - Off label use [Unknown]
  - COVID-19 [Recovered/Resolved]
  - Eye disorder [Recovering/Resolving]

NARRATIVE: CASE EVENT DATE: 20240101
